FAERS Safety Report 5405427-7 (Version None)
Quarter: 2007Q3

REPORT INFORMATION
  Report Type: 
  Country: None (occurrence: None)
  Receive Date: 20070803
  Receipt Date: 20070724
  Transmission Date: 20080115
  Serious: Yes (Death, Other)
  Sender: FDA-Public Use
  Company Number: US-PFIZER INC-2007031590

PATIENT
  Weight: 35.4 kg

DRUGS (4)
  1. ZOLOFT [Suspect]
     Indication: ANXIETY
  2. VERSED [Suspect]
  3. CHARCOAL, ACTIVATED [Suspect]
  4. ATIVAN [Suspect]

REACTIONS (12)
  - AGITATION [None]
  - AKATHISIA [None]
  - ANXIETY [None]
  - ASPHYXIA [None]
  - CARDIO-RESPIRATORY ARREST [None]
  - COMPLETED SUICIDE [None]
  - CONFUSIONAL STATE [None]
  - HAEMODYNAMIC INSTABILITY [None]
  - HALLUCINATION [None]
  - INCORRECT DOSE ADMINISTERED [None]
  - INFLUENZA [None]
  - SLEEP DISORDER [None]
